FAERS Safety Report 16206307 (Version 1)
Quarter: 2019Q2

REPORT INFORMATION
  Report Type: Spontaneous
  Country: HK (occurrence: HK)
  Receive Date: 20190417
  Receipt Date: 20190417
  Transmission Date: 20190711
  Serious: Yes (Other)
  Sender: FDA-Public Use
  Company Number: HK-SUN PHARMACEUTICAL INDUSTRIES LTD-2019RR-205460

PATIENT
  Age: 3 Year
  Sex: Male

DRUGS (17)
  1. METHOTREXATE. [Suspect]
     Active Substance: METHOTREXATE
     Indication: B-CELL TYPE ACUTE LEUKAEMIA
     Dosage: (DAYS 5, 19)
     Route: 037
  2. PIPERACILLIN/TAZOBACTAM [Suspect]
     Active Substance: PIPERACILLIN SODIUM\TAZOBACTAM SODIUM
     Indication: PRODUCT USED FOR UNKNOWN INDICATION
     Dosage: UNK
     Route: 065
  3. VANCOMYCIN HYDROCHLORIDE. [Suspect]
     Active Substance: VANCOMYCIN HYDROCHLORIDE
     Indication: CANDIDA INFECTION
     Dosage: UNK
     Route: 065
  4. PIPERACILLIN/TAZOBACTAM [Suspect]
     Active Substance: PIPERACILLIN SODIUM\TAZOBACTAM SODIUM
     Indication: CANDIDA INFECTION
     Dosage: UNK
     Route: 065
  5. HYDROCORTISONE. [Suspect]
     Active Substance: HYDROCORTISONE
     Indication: B-CELL TYPE ACUTE LEUKAEMIA
     Dosage: (DAYS 5, 19)
     Route: 065
  6. FLUCONAZOLE. [Suspect]
     Active Substance: FLUCONAZOLE
     Indication: CANDIDA INFECTION
     Dosage: UNK
     Route: 065
  7. PREDNISOLONE. [Suspect]
     Active Substance: PREDNISOLONE
     Indication: B-CELL TYPE ACUTE LEUKAEMIA
     Dosage: (DAYS 5-35)
     Route: 065
  8. MEROPENEM. [Suspect]
     Active Substance: MEROPENEM
     Indication: CANDIDA INFECTION
     Dosage: UNK
     Route: 065
  9. AMPHOTERICIN B LIPOSOME [Suspect]
     Active Substance: AMPHOTERICIN B
     Indication: CANDIDA INFECTION
     Dosage: UNK
     Route: 065
  10. DEXAMETHASONE. [Suspect]
     Active Substance: DEXAMETHASONE
     Indication: B-CELL TYPE ACUTE LEUKAEMIA
     Dosage: (DAYS 1-4)
     Route: 065
  11. DAUNORUBICIN [Suspect]
     Active Substance: DAUNORUBICIN
     Indication: B-CELL TYPE ACUTE LEUKAEMIA
     Dosage: (DAY 5)
     Route: 065
  12. VINCRISTINE [Suspect]
     Active Substance: VINCRISTINE
     Indication: B-CELL TYPE ACUTE LEUKAEMIA
     Dosage: (DAYS 5, 12, 19, 26)
     Route: 065
  13. METRONIDAZOLE. [Suspect]
     Active Substance: METRONIDAZOLE
     Indication: PRODUCT USED FOR UNKNOWN INDICATION
     Dosage: UNK
     Route: 065
  14. L-ASPARAGINASE [Suspect]
     Active Substance: ASPARAGINASE
     Indication: B-CELL TYPE ACUTE LEUKAEMIA
     Dosage: (ALTERNATE DAY ON DAYS 6-24)
     Route: 065
  15. CYTARABINE. [Suspect]
     Active Substance: CYTARABINE
     Indication: B-CELL TYPE ACUTE LEUKAEMIA
     Dosage: (DAYS 5, 19)
     Route: 065
  16. AMIKACIN. [Suspect]
     Active Substance: AMIKACIN
     Indication: CANDIDA INFECTION
     Dosage: UNK
     Route: 065
  17. MICAFUNGIN. [Suspect]
     Active Substance: MICAFUNGIN SODIUM
     Indication: CANDIDA INFECTION
     Dosage: UNK
     Route: 065

REACTIONS (3)
  - Disease recurrence [Unknown]
  - Drug ineffective [Unknown]
  - Immune reconstitution inflammatory syndrome [Recovering/Resolving]
